FAERS Safety Report 24747433 (Version 1)
Quarter: 2024Q4

REPORT INFORMATION
  Report Type: Spontaneous
  Country: US (occurrence: None)
  Receive Date: 20241217
  Receipt Date: 20241217
  Transmission Date: 20250114
  Serious: Yes (Death)
  Sender: Public
  Company Number: None

PATIENT
  Age: 8 Month
  Sex: Male
  Weight: 78.47 kg

DRUGS (11)
  1. CABENUVA [Suspect]
     Active Substance: CABOTEGRAVIR\RILPIVIRINE
     Indication: HIV infection
     Dosage: OTHER QUANTITY : 600/900 MG;?OTHER FREQUENCY : EVERY 2 MONTHS;?
     Route: 030
     Dates: end: 20241015
  2. ELIQUIS [Concomitant]
     Active Substance: APIXABAN
  3. CLONIDINE [Concomitant]
     Active Substance: CLONIDINE
  4. LEXAPRO [Concomitant]
     Active Substance: ESCITALOPRAM OXALATE
  5. SYNTHROID [Concomitant]
     Active Substance: LEVOTHYROXINE SODIUM
  6. ATIVAN [Concomitant]
     Active Substance: LORAZEPAM
  7. PRILOSEC [Concomitant]
     Active Substance: OMEPRAZOLE MAGNESIUM
  8. LIPITOR [Concomitant]
     Active Substance: ATORVASTATIN CALCIUM
  9. DILITAZEM [Concomitant]
  10. PREGABALIN [Concomitant]
     Active Substance: PREGABALIN
  11. MOVANTIK [Concomitant]
     Active Substance: NALOXEGOL OXALATE

REACTIONS (1)
  - Death [None]

NARRATIVE: CASE EVENT DATE: 20241206
